FAERS Safety Report 25940783 (Version 1)
Quarter: 2025Q4

REPORT INFORMATION
  Report Type: Spontaneous
  Country: US (occurrence: US)
  Receive Date: 20251020
  Receipt Date: 20251020
  Transmission Date: 20260117
  Serious: No
  Sender: PFIZER
  Company Number: US-PFIZER INC-202500193398

PATIENT
  Age: 56 Year
  Sex: Male

DRUGS (2)
  1. CHANTIX [Suspect]
     Active Substance: VARENICLINE TARTRATE
     Indication: Smoking cessation therapy
     Dosage: 0.5 MG (1 X 0.5 MG TABLET, ONCE DAILY FOR 3 DAYS, THEN 1 X 0.5 MG TABLET, EVERY 12 HOURS FOR 4 DAYS)
     Route: 048
     Dates: start: 20210517, end: 20210523
  2. CHANTIX [Suspect]
     Active Substance: VARENICLINE TARTRATE
     Dosage: 1 MG, 2X/DAY (WITH GLASS OF WATER, AFTER MEAL)
     Route: 048
     Dates: start: 20210524, end: 20210917

REACTIONS (9)
  - Skin lesion [Unknown]
  - Pharyngeal swelling [Unknown]
  - Oropharyngeal pain [Unknown]
  - Nasal congestion [Unknown]
  - Cough [Unknown]
  - Rhinorrhoea [Unknown]
  - Headache [Unknown]
  - Chest discomfort [Unknown]
  - Palpitations [Unknown]

NARRATIVE: CASE EVENT DATE: 20210101
